FAERS Safety Report 17267662 (Version 5)
Quarter: 2023Q1

REPORT INFORMATION
  Report Type: Spontaneous
  Country: US (occurrence: US)
  Receive Date: 20200114
  Receipt Date: 20230220
  Transmission Date: 20230417
  Serious: No
  Sender: FDA-Public Use
  Company Number: US-PFIZER INC-2020016524

PATIENT
  Age: 68 Year
  Sex: Female
  Weight: 81.633 kg

DRUGS (1)
  1. XELJANZ XR [Suspect]
     Active Substance: TOFACITINIB CITRATE
     Indication: Rheumatoid arthritis
     Dosage: 11 MG, ONCE DAILY
     Route: 048
     Dates: start: 2019

REACTIONS (3)
  - Amnesia [Recovered/Resolved]
  - Herpes zoster [Unknown]
  - Product prescribing error [Unknown]
